FAERS Safety Report 10483846 (Version 1)
Quarter: 2014Q3

REPORT INFORMATION
  Report Type: Spontaneous
  Country: US (occurrence: None)
  Receive Date: 20140929
  Receipt Date: 20140929
  Transmission Date: 20150326
  Serious: Yes (Disabling, Other)
  Sender: FDA-Public Use
  Company Number: None

PATIENT
  Age: 45 Year
  Sex: Female

DRUGS (4)
  1. QUETIAPINE FUMARATE. [Suspect]
     Active Substance: QUETIAPINE FUMARATE
     Indication: ANXIETY
     Dosage: 1 TABLET
     Route: 048
     Dates: start: 20140905, end: 20140919
  2. QUETIAPINE FUMARATE. [Suspect]
     Active Substance: QUETIAPINE FUMARATE
     Indication: BIPOLAR I DISORDER
     Dosage: 1 TABLET
     Route: 048
     Dates: start: 20140905, end: 20140919
  3. QUETIAPINE FUMARATE. [Suspect]
     Active Substance: QUETIAPINE FUMARATE
     Indication: INSOMNIA
     Dosage: 1 TABLET
     Route: 048
     Dates: start: 20140905, end: 20140919
  4. QUETIAPINE FUMARATE. [Suspect]
     Active Substance: QUETIAPINE FUMARATE
     Indication: DISTURBANCE IN ATTENTION
     Dosage: 1 TABLET
     Route: 048
     Dates: start: 20140905, end: 20140919

REACTIONS (5)
  - Insomnia [None]
  - Depression [None]
  - Anxiety [None]
  - Disturbance in attention [None]
  - Product substitution issue [None]

NARRATIVE: CASE EVENT DATE: 20140905
